FAERS Safety Report 8828558 (Version 1)
Quarter: 2012Q4

REPORT INFORMATION
  Report Type: 
  Country: NL (occurrence: NL)
  Receive Date: 20121005
  Receipt Date: 20121005
  Transmission Date: 20130627
  Serious: Yes (Other)
  Sender: FDA-Public Use
  Company Number: NL-AMGEN-NLDSP2012062841

PATIENT
  Age: 28 Year
  Sex: Female
  Weight: 99 kg

DRUGS (3)
  1. ENBREL [Suspect]
     Indication: PRODUCT USED FOR UNKNOWN INDICATION
     Dosage: 50 mg, 2x/week
     Dates: start: 20090710
  2. SEROQUEL [Concomitant]
     Dosage: 25 mg, 4x to 6x/day
     Dates: start: 20120701
  3. VENLAFAXINE [Concomitant]
     Dosage: 150 mg, 1x/day
     Dates: start: 20120701

REACTIONS (1)
  - Depression [Not Recovered/Not Resolved]
